FAERS Safety Report 24802677 (Version 7)
Quarter: 2025Q1

REPORT INFORMATION
  Report Type: Spontaneous
  Country: BR (occurrence: BR)
  Receive Date: 20250103
  Receipt Date: 20250303
  Transmission Date: 20250409
  Serious: Yes (Death, Hospitalization, Other)
  Sender: ASTELLAS
  Company Number: BR-ASTELLAS-2024-AER-028350

PATIENT
  Age: 69 Year
  Sex: Male

DRUGS (2)
  1. XTANDI [Suspect]
     Active Substance: ENZALUTAMIDE
     Indication: Prostate cancer
     Dosage: 4X40MG
     Route: 048
     Dates: start: 20241226, end: 20241228
  2. LUTETIUM LU-177 [Suspect]
     Active Substance: LUTETIUM LU-177
     Indication: Product used for unknown indication
     Route: 065

REACTIONS (7)
  - Malignant neoplasm progression [Fatal]
  - Anaemia [Not Recovered/Not Resolved]
  - Platelet count decreased [Not Recovered/Not Resolved]
  - Haemoglobin decreased [Not Recovered/Not Resolved]
  - Full blood count decreased [Not Recovered/Not Resolved]
  - Pain [Not Recovered/Not Resolved]
  - Asthenia [Not Recovered/Not Resolved]

NARRATIVE: CASE EVENT DATE: 20241228
